FAERS Safety Report 18072956 (Version 1)
Quarter: 2020Q3

REPORT INFORMATION
  Report Type: Spontaneous
  Country: US (occurrence: US)
  Receive Date: 20200723
  Receipt Date: 20200723
  Transmission Date: 20201103
  Serious: Yes (Hospitalization)
  Sender: FDA-Public Use
  Company Number: None

PATIENT
  Age: 51 Year
  Sex: Male
  Weight: 119.75 kg

DRUGS (11)
  1. BENZTROPINE. [Concomitant]
     Active Substance: BENZTROPINE
     Dates: start: 20020502
  2. OLANZAPINE. [Concomitant]
     Active Substance: OLANZAPINE
     Dates: start: 20191106
  3. THLOTHIXINE [Concomitant]
     Dates: start: 20191230
  4. ALLOPURINOL. [Concomitant]
     Active Substance: ALLOPURINOL
     Dates: start: 20020218
  5. OLANZAPINE. [Concomitant]
     Active Substance: OLANZAPINE
     Dates: start: 20200602
  6. TRAZODONE [Concomitant]
     Active Substance: TRAZODONE HYDROCHLORIDE
     Dates: start: 20191230
  7. CLONAZEPAM. [Concomitant]
     Active Substance: CLONAZEPAM
     Dates: start: 20191217
  8. LITHIUM CARBONATE. [Concomitant]
     Active Substance: LITHIUM CARBONATE
     Dates: start: 20190116
  9. INVEGA SUSTENNA [Suspect]
     Active Substance: PALIPERIDONE PALMITATE
     Indication: BIPOLAR I DISORDER
     Dosage: ?          OTHER DOSE:234MG/1.5ML;?
     Route: 030
     Dates: start: 20200701, end: 20200723
  10. CLONAZEPAM. [Concomitant]
     Active Substance: CLONAZEPAM
     Dates: start: 20191106
  11. AMANLADINE [Concomitant]
     Dates: start: 20191114

REACTIONS (9)
  - Unresponsive to stimuli [None]
  - Hypotension [None]
  - Encephalopathy [None]
  - Respiratory failure [None]
  - Hyperthermia [None]
  - Therapy interrupted [None]
  - Tachycardia [None]
  - Neuroleptic malignant syndrome [None]
  - Renal failure [None]

NARRATIVE: CASE EVENT DATE: 20200701
